FAERS Safety Report 15366942 (Version 1)
Quarter: 2018Q3

REPORT INFORMATION
  Report Type: Spontaneous
  Country: US (occurrence: US)
  Receive Date: 20180910
  Receipt Date: 20180910
  Transmission Date: 20181010
  Serious: Yes (Hospitalization, Other)
  Sender: FDA-Public Use
  Company Number: US-ABBVIE-18P-163-2479109-00

PATIENT
  Sex: Female

DRUGS (1)
  1. DEPAKOTE [Suspect]
     Active Substance: DIVALPROEX SODIUM
     Indication: BIPOLAR DISORDER
     Dosage: 1500 MILLIGRAMS DAILY
     Route: 065

REACTIONS (6)
  - Cognitive disorder [Unknown]
  - Motor dysfunction [Unknown]
  - Incontinence [Unknown]
  - Gait disturbance [Unknown]
  - Encephalopathy [Unknown]
  - Hydrocephalus [Unknown]
